FAERS Safety Report 8908483 (Version 1)
Quarter: 2012Q4

REPORT INFORMATION
  Report Type: 
  Country: US (occurrence: US)
  Receive Date: 20121114
  Receipt Date: 20121114
  Transmission Date: 20130627
  Serious: No
  Sender: FDA-Public Use
  Company Number: US-TEVA-369830USA

PATIENT
  Age: 52 Year
  Sex: Female
  Weight: 79.45 kg

DRUGS (1)
  1. QNASL [Suspect]
     Dosage: 3
     Dates: start: 20121109

REACTIONS (1)
  - Burning sensation [Recovered/Resolved]
